FAERS Safety Report 21000843 (Version 1)
Quarter: 2022Q2

REPORT INFORMATION
  Report Type: Spontaneous
  Country: FI (occurrence: None)
  Receive Date: 20220623
  Receipt Date: 20220623
  Transmission Date: 20220721
  Serious: Yes (Other)
  Sender: FDA-Public Use
  Company Number: FI-Merck Healthcare KGaA-9331043

PATIENT
  Age: 36 Year
  Sex: Female

DRUGS (1)
  1. MAVENCLAD [Suspect]
     Active Substance: CLADRIBINE
     Indication: Relapsing-remitting multiple sclerosis
     Dosage: FIRST MAVENCLAD TREATMENT CYCLE
     Dates: end: 202204

REACTIONS (5)
  - Neuropathy peripheral [Not Recovered/Not Resolved]
  - Paraesthesia [Recovering/Resolving]
  - Tenderness [Recovering/Resolving]
  - Musculoskeletal stiffness [Recovering/Resolving]
  - Impaired work ability [Recovering/Resolving]

NARRATIVE: CASE EVENT DATE: 20220101
